FAERS Safety Report 18702882 (Version 1)
Quarter: 2021Q1

REPORT INFORMATION
  Report Type: Report from Study
  Country: DE (occurrence: DE)
  Receive Date: 20210105
  Receipt Date: 20210105
  Transmission Date: 20210419
  Serious: Yes (Hospitalization, Other)
  Sender: FDA-Public Use
  Company Number: DE-BRISTOL-MYERS SQUIBB COMPANY-BMS-2020-098424

PATIENT
  Age: 69 Year
  Sex: Male
  Weight: 79 kg

DRUGS (9)
  1. CARFILZOMIB [Suspect]
     Active Substance: CARFILZOMIB
     Indication: PLASMA CELL MYELOMA
     Dosage: 693 MILLIGRAM
     Route: 042
     Dates: start: 20200702, end: 20200918
  2. LENALIDOMIDE [Suspect]
     Active Substance: LENALIDOMIDE
     Indication: PLASMA CELL MYELOMA
     Dosage: 25 MILLIGRAM, Q3WK
     Route: 048
     Dates: start: 20200702, end: 20200923
  3. DEXAMETHASONE. [Suspect]
     Active Substance: DEXAMETHASONE
     Indication: PLASMA CELL MYELOMA
     Dosage: 28 MILLIGRAM
     Route: 048
     Dates: start: 20200702
  4. DEXAMETHASONE. [Suspect]
     Active Substance: DEXAMETHASONE
     Dosage: 40 MILLIGRAM, QWK
     Route: 048
     Dates: end: 20200924
  5. ATORVASTATIN [Concomitant]
     Active Substance: ATORVASTATIN
     Indication: HYPERCHOLESTEROLAEMIA
     Dosage: 40 MILLIGRAM; 0?0?1
     Route: 048
     Dates: start: 2018
  6. LERCANIDIPINE [Concomitant]
     Active Substance: LERCANIDIPINE
     Indication: HYPERTENSION
     Dosage: 20 MILLIGRAM; 1?0?0
     Route: 048
     Dates: start: 2018
  7. DEXAMETHASONE. [Suspect]
     Active Substance: DEXAMETHASONE
     Indication: PLASMA CELL MYELOMA
     Dosage: 0.8 MILLIGRAM
     Route: 042
     Dates: start: 20200702, end: 20200924
  8. APIXABAN [Concomitant]
     Active Substance: APIXABAN
     Indication: ATRIAL FIBRILLATION
     Dosage: 5 MILLIGRAM; 1?0?1
     Dates: start: 20200819
  9. ELOTUZUMAB. [Suspect]
     Active Substance: ELOTUZUMAB
     Indication: PLASMA CELL MYELOMA
     Dosage: 810 MILLIGRAM
     Route: 042
     Dates: start: 20200702, end: 20200917

REACTIONS (2)
  - Atrial fibrillation [Recovered/Resolved]
  - Testicular abscess [Recovered/Resolved]

NARRATIVE: CASE EVENT DATE: 20201101
